FAERS Safety Report 24024385 (Version 1)
Quarter: 2024Q2

REPORT INFORMATION
  Report Type: Report from Study
  Country: RO (occurrence: RO)
  Receive Date: 20240628
  Receipt Date: 20240628
  Transmission Date: 20240716
  Serious: No
  Sender: FDA-Public Use
  Company Number: RO-ROCHE-3515379

PATIENT
  Age: 69 Year
  Sex: Female

DRUGS (2)
  1. PHESGO [Suspect]
     Active Substance: HYALURONIDASE-ZZXF\PERTUZUMAB\TRASTUZUMAB
     Indication: Breast cancer
     Dosage: 600 MG/600 MG
     Route: 042
  2. PHESGO [Suspect]
     Active Substance: HYALURONIDASE-ZZXF\PERTUZUMAB\TRASTUZUMAB
     Dosage: 600 MG/600 MG
     Route: 058

REACTIONS (6)
  - Off label use [Unknown]
  - Malaise [Unknown]
  - Diarrhoea [Unknown]
  - Pain [Unknown]
  - Asthenia [Unknown]
  - Dysstasia [Unknown]
